FAERS Safety Report 10714107 (Version 2)
Quarter: 2015Q1

REPORT INFORMATION
  Report Type: Report from Study
  Country: US (occurrence: US)
  Receive Date: 20150115
  Receipt Date: 20150129
  Transmission Date: 20150721
  Serious: Yes (Hospitalization, Other)
  Sender: FDA-Public Use
  Company Number: US-BAYER-2014-142732

PATIENT
  Age: 61 Year
  Sex: Male
  Weight: 59 kg

DRUGS (11)
  1. NEXAVAR [Suspect]
     Active Substance: SORAFENIB
     Indication: HEPATOCELLULAR CARCINOMA
     Dosage: 200 MG, Q8 HRS
     Route: 048
     Dates: start: 201412
  2. NEXAVAR [Suspect]
     Active Substance: SORAFENIB
     Indication: HEPATOCELLULAR CARCINOMA
     Dosage: 400 MG, BID
     Route: 048
     Dates: start: 20140914, end: 201410
  3. ACTOS [Concomitant]
     Active Substance: PIOGLITAZONE HYDROCHLORIDE
  4. GLYBURIDE. [Concomitant]
     Active Substance: GLYBURIDE
  5. LISINOPRIL. [Concomitant]
     Active Substance: LISINOPRIL
  6. PENICILLINE [Concomitant]
     Active Substance: PENICILLIN
  7. ASPIRIN. [Concomitant]
     Active Substance: ASPIRIN
  8. NEXAVAR [Suspect]
     Active Substance: SORAFENIB
     Indication: HEPATOCELLULAR CARCINOMA
     Dosage: 200 MG, BID
     Route: 048
     Dates: start: 20141027, end: 201412
  9. ECOTRIN [Concomitant]
     Active Substance: ASPIRIN
  10. NORVASC [Concomitant]
     Active Substance: AMLODIPINE BESYLATE
  11. MILK THISTLE [Concomitant]
     Active Substance: MILK THISTLE

REACTIONS (12)
  - Pain in extremity [Unknown]
  - Electrolyte imbalance [None]
  - Blood sodium decreased [None]
  - Hypertension [Recovered/Resolved]
  - Rash pruritic [None]
  - Asthenia [Not Recovered/Not Resolved]
  - Dry skin [None]
  - Oedema [None]
  - Blood pressure increased [None]
  - Rash macular [Unknown]
  - Fatigue [None]
  - Mouth haemorrhage [None]

NARRATIVE: CASE EVENT DATE: 20140919
